FAERS Safety Report 4705098-9 (Version None)
Quarter: 2005Q3

REPORT INFORMATION
  Report Type: 
  Country: None (occurrence: None)
  Receive Date: 20050701
  Receipt Date: 20050627
  Transmission Date: 20060218
  Serious: Yes (Hospitalization)
  Sender: FDA-Public Use
  Company Number: US-JNJFOC-20050607036

PATIENT
  Sex: Female
  Weight: 68.04 kg

DRUGS (3)
  1. ELMIRON [Suspect]
     Route: 049
  2. ELMIRON [Suspect]
     Route: 049
  3. ELMIRON [Suspect]
     Indication: CYSTITIS INTERSTITIAL
     Route: 049

REACTIONS (3)
  - ALOPECIA [None]
  - BLADDER REPAIR [None]
  - HYSTERECTOMY [None]
